FAERS Safety Report 22612165 (Version 1)
Quarter: 2023Q2

REPORT INFORMATION
  Report Type: Spontaneous
  Country: US (occurrence: US)
  Receive Date: 20230617
  Receipt Date: 20230617
  Transmission Date: 20230722
  Serious: No
  Sender: FDA-Public Use
  Company Number: US-GSK-US2023AMR081606

PATIENT
  Age: 69 Year
  Sex: Female

DRUGS (1)
  1. FLOVENT HFA [Suspect]
     Active Substance: FLUTICASONE PROPIONATE
     Indication: Product used for unknown indication
     Dosage: UNK (44 MCG, 10.6G/120 METERED)

REACTIONS (4)
  - Wrong technique in device usage process [Unknown]
  - Device defective [Unknown]
  - Wrong technique in product usage process [Unknown]
  - Product complaint [Unknown]
